FAERS Safety Report 7058579 (Version 3)
Quarter: 2014Q1

REPORT INFORMATION
  Report Type: Spontaneous
  Country: US (occurrence: None)
  Receive Date: 20090708
  Receipt Date: 20140113
  Transmission Date: 20141002
  Serious: Yes (Hospitalization, Other)
  Sender: FDA-Public Use
  Company Number: 2009S1005284

PATIENT
  Age: 63 Year
  Sex: Female

DRUGS (12)
  1. PHOSPHO-SODA [Suspect]
     Indication: SIGMOIDOSCOPY
     Dosage: 135 M, 3 IN 24 HOURS, ORAL
     Route: 048
     Dates: start: 20080602, end: 20080602
  2. DULCOLAX (BISACODYL) [Suspect]
     Indication: SIGMOIDOSCOPY
     Dosage: 4 IN 24 HOURS, ORAL
     Route: 048
     Dates: start: 20080602, end: 20080602
  3. FOSAMAX (ALENDRONATE SODIUM) [Concomitant]
  4. SYNTHROID (LEVOTHYROXINE SODIUM) [Concomitant]
  5. SIMVASTATIN (SIMVASTATIN) [Concomitant]
  6. FEMARA (LETROZOLE) [Concomitant]
  7. CLARITIN (LORATADINE) [Concomitant]
  8. CALCIUM (CALCIUM) [Concomitant]
  9. MAGNESIUM (MAGNESIUM) [Concomitant]
  10. MULTIVITAMIN (ERGOCALCIFEROL, ASCORBIC ACID, PYRIDOXINE HYDROCHLORIDE, THIAMINE HYDROCHLORIDE, RETINOL, RIBOFLAVIN, NICOTINAMIDE, CALCIUM PANTOTHENATE)? [Concomitant]
  11. VITAMIN E (TOCOPHEROL) [Concomitant]
  12. CHLORTABS (CHLORPHENAMINE MALEATE) [Concomitant]

REACTIONS (12)
  - Renal injury [None]
  - Renal failure acute [None]
  - Renal disorder [None]
  - Nausea [None]
  - Headache [None]
  - Vomiting [None]
  - Dehydration [None]
  - Renal tubular necrosis [None]
  - Nephrogenic anaemia [None]
  - Renal failure chronic [None]
  - Inappropriate schedule of drug administration [None]
  - Incorrect dose administered [None]
